FAERS Safety Report 20015979 (Version 1)
Quarter: 2021Q4

REPORT INFORMATION
  Report Type: Spontaneous
  Country: US (occurrence: None)
  Receive Date: 20211102
  Receipt Date: 20211102
  Transmission Date: 20220303
  Serious: Yes (Hospitalization, Disabling)
  Sender: FDA-Public Use
  Company Number: None

PATIENT
  Age: 21 Year
  Sex: Female
  Weight: 72.45 kg

DRUGS (7)
  1. DEPO-PROVERA [Suspect]
     Active Substance: MEDROXYPROGESTERONE ACETATE
     Indication: Menstruation irregular
     Dosage: OTHER QUANTITY : 1 INJECTION(S);?OTHER FREQUENCY : EVERY THREE MONTHS;?OTHER ROUTE : INJECTED INTO D
     Route: 050
     Dates: start: 20201101, end: 20210319
  2. MODERNA COVID-19 VACCINE [Suspect]
     Active Substance: CX-024414
  3. DOXYCYCLINE [Concomitant]
     Active Substance: DOXYCYCLINE
  4. MACROBID [Concomitant]
     Active Substance: NITROFURANTOIN\NITROFURANTOIN MONOHYDRATE
  5. ZOFRAN [Concomitant]
     Active Substance: ONDANSETRON HYDROCHLORIDE
  6. VITAMINS [Concomitant]
     Active Substance: VITAMINS
  7. TYLENOL [Concomitant]
     Active Substance: ACETAMINOPHEN

REACTIONS (5)
  - Injection site pain [None]
  - Dizziness [None]
  - Urinary tract infection [None]
  - Bacterial vaginosis [None]
  - Pelvic inflammatory disease [None]

NARRATIVE: CASE EVENT DATE: 20210319
